FAERS Safety Report 4293143-7 (Version None)
Quarter: 2004Q1

REPORT INFORMATION
  Report Type: 
  Country: None (occurrence: None)
  Receive Date: 20040212
  Receipt Date: 20030610
  Transmission Date: 20041129
  Serious: Yes (Other)
  Sender: FDA-Public Use
  Company Number: US-GLAXOSMITHKLINE-A0411870A

PATIENT
  Age: 27 Year
  Sex: Female
  Weight: 46.4 kg

DRUGS (1)
  1. PAXIL [Suspect]
     Route: 048

REACTIONS (5)
  - DRUG EXPOSURE DURING PREGNANCY [None]
  - DRUG WITHDRAWAL SYNDROME [None]
  - NAUSEA [None]
  - PALPITATIONS [None]
  - VOMITING [None]
